FAERS Safety Report 8629288 (Version 2)
Quarter: 2012Q4

REPORT INFORMATION
  Report Type: 
  Country: FR (occurrence: FR)
  Receive Date: 20120621
  Receipt Date: 20121026
  Transmission Date: 20130627
  Serious: Yes (Life-Threatening, Hospitalization, Other)
  Sender: FDA-Public Use
  Company Number: FR-MERCK-1110FRA00050

PATIENT
  Age: 71 Year
  Sex: Male
  Weight: 80 kg

DRUGS (4)
  1. JANUVIA [Suspect]
     Indication: TYPE 2 DIABETES MELLITUS
     Dosage: 100 mg, qd
     Route: 048
     Dates: start: 2008, end: 20110902
  2. LANTUS [Concomitant]
     Indication: DIABETES MELLITUS
  3. DIAMICRON [Concomitant]
     Indication: TYPE 2 DIABETES MELLITUS
     Dosage: 120 mg, qd
     Route: 048
  4. ALLOPURINOL [Concomitant]

REACTIONS (4)
  - Pancreatitis necrotising [Recovered/Resolved]
  - Pancreatitis acute [Recovered/Resolved]
  - Pancreatitis chronic [Not Recovered/Not Resolved]
  - Pancreatic neoplasm [Not Recovered/Not Resolved]
